FAERS Safety Report 17609163 (Version 1)
Quarter: 2020Q2

REPORT INFORMATION
  Report Type: Report from Study
  Country: None (occurrence: US)
  Receive Date: 20200401
  Receipt Date: 20200401
  Transmission Date: 20200713
  Serious: Yes (Other)
  Sender: FDA-Public Use
  Company Number: US-ABBVIE-20K-163-3346423-00

PATIENT
  Sex: Female

DRUGS (2)
  1. XOLAIR [Concomitant]
     Active Substance: OMALIZUMAB
     Indication: PRODUCT USED FOR UNKNOWN INDICATION
  2. HUMIRA [Suspect]
     Active Substance: ADALIMUMAB
     Indication: PSORIATIC ARTHROPATHY
     Route: 058

REACTIONS (7)
  - Hospice care [Unknown]
  - Hip surgery [Not Recovered/Not Resolved]
  - Limb operation [Not Recovered/Not Resolved]
  - Urticaria [Not Recovered/Not Resolved]
  - Knee operation [Not Recovered/Not Resolved]
  - Respiratory tract infection [Recovered/Resolved]
  - Neuropathy peripheral [Not Recovered/Not Resolved]
